FAERS Safety Report 8847576 (Version 1)
Quarter: 2012Q4

REPORT INFORMATION
  Report Type: 
  Country: US (occurrence: US)
  Receive Date: 20121018
  Receipt Date: 20121018
  Transmission Date: 20130627
  Serious: No
  Sender: FDA-Public Use
  Company Number: US-VERTEX PHARMACEUTICAL INC.-2012-022650

PATIENT
  Age: 57 Year
  Sex: Male
  Weight: 82 kg

DRUGS (7)
  1. VX-950 [Suspect]
     Indication: HEPATITIS C
     Dosage: 750 mg, tid
     Route: 048
  2. PEGASYS [Suspect]
     Indication: HEPATITIS C
     Dosage: 180 ?g, UNK
     Route: 058
  3. RIBAPAK [Suspect]
     Indication: HEPATITIS C
     Dosage: 600 mg, UNK
     Route: 048
  4. LISINOPRIL [Concomitant]
     Dosage: 5 mg, UNK
     Route: 048
  5. ADVIL                              /00044201/ [Concomitant]
     Dosage: 200 mg, UNK
     Route: 048
  6. LEVOTHYROXINE [Concomitant]
     Dosage: 50 ?g, UNK
     Route: 048
  7. MULTIVITAMIN                       /00097801/ [Concomitant]
     Route: 048

REACTIONS (1)
  - Contusion [Unknown]
